FAERS Safety Report 17823234 (Version 1)
Quarter: 2020Q2

REPORT INFORMATION
  Report Type: Spontaneous
  Country: US (occurrence: US)
  Receive Date: 20200523
  Receipt Date: 20200523
  Transmission Date: 20200714
  Serious: Yes (Other)
  Sender: FDA-Public Use
  Company Number: None

PATIENT
  Age: 24 Year
  Sex: Female
  Weight: 60.75 kg

DRUGS (3)
  1. FAMOTIDINE. [Concomitant]
     Active Substance: FAMOTIDINE
  2. PREDNISONE. [Concomitant]
     Active Substance: PREDNISONE
  3. OPTION 2 [Suspect]
     Active Substance: LEVONORGESTREL
     Indication: UNWANTED PREGNANCY
     Route: 048
     Dates: start: 20200518, end: 20200518

REACTIONS (3)
  - Pruritus [None]
  - Oropharyngeal pain [None]
  - Pharyngeal swelling [None]

NARRATIVE: CASE EVENT DATE: 20200521
